FAERS Safety Report 7103797-5 (Version None)
Quarter: 2010Q4

REPORT INFORMATION
  Report Type: 
  Country: None (occurrence: None)
  Receive Date: 20101115
  Receipt Date: 20101110
  Transmission Date: 20110411
  Serious: Yes (Other)
  Sender: FDA-Public Use
  Company Number: JP-PFIZER INC-2010143035

PATIENT
  Age: 17 Year

DRUGS (2)
  1. GENOTROPIN [Suspect]
     Indication: SMALL FOR DATES BABY
     Dosage: UNK
     Dates: start: 20080101
  2. GENOTROPIN [Suspect]
     Indication: DWARFISM

REACTIONS (1)
  - RENAL GLYCOSURIA [None]
